FAERS Safety Report 16768360 (Version 1)
Quarter: 2019Q3

REPORT INFORMATION
  Report Type: Spontaneous
  Country: US (occurrence: US)
  Receive Date: 20190715
  Receipt Date: 20190715
  Transmission Date: 20191005
  Serious: Yes (Disabling)
  Sender: FDA-Public Use
  Company Number: None

PATIENT
  Age: 76 Year
  Sex: Female
  Weight: 56.25 kg

DRUGS (7)
  1. OMEPRAZOLE DR [Concomitant]
     Active Substance: OMEPRAZOLE
  2. SUMATRIPTAN. [Concomitant]
     Active Substance: SUMATRIPTAN
  3. BOTOX [Suspect]
     Active Substance: ONABOTULINUMTOXINA
     Indication: MIGRAINE
     Dosage: ?          QUANTITY:15-20 INJECTIONS;?
     Dates: start: 20190218, end: 20190218
  4. HORMONES: ESTRONE/ESTRDIOL/ESTRIOPROGESTERONE [Concomitant]
  5. VALACYCLOVIR HCL [Concomitant]
     Active Substance: VALACYCLOVIR HYDROCHLORIDE
  6. PROBIOTIC [Concomitant]
     Active Substance: PROBIOTICS NOS
  7. WOMANS DAILY MULTIVITAMIN [Concomitant]

REACTIONS (21)
  - Pain [None]
  - Pollakiuria [None]
  - Quality of life decreased [None]
  - Fluid retention [None]
  - Visual impairment [None]
  - Paranasal sinus mucosal hypertrophy [None]
  - Joint stiffness [None]
  - Malaise [None]
  - Neck pain [None]
  - Muscle spasms [None]
  - Bladder disorder [None]
  - Cardiac disorder [None]
  - Musculoskeletal pain [None]
  - Chest pain [None]
  - Migraine [None]
  - Musculoskeletal stiffness [None]
  - Influenza like illness [None]
  - Swelling [None]
  - Vision blurred [None]
  - Sinus pain [None]
  - Fatigue [None]

NARRATIVE: CASE EVENT DATE: 20190218
